FAERS Safety Report 7786468-1 (Version None)
Quarter: 2011Q3

REPORT INFORMATION
  Report Type: 
  Country: None (occurrence: None)
  Receive Date: 20110928
  Receipt Date: 20110928
  Transmission Date: 20111222
  Serious: Yes (Life-Threatening)
  Sender: FDA-Public Use
  Company Number: None

PATIENT
  Age: 65 Year
  Sex: Male
  Weight: 130.4 kg

DRUGS (1)
  1. FAMCICLOVIR [Suspect]
     Indication: HERPES ZOSTER
     Dosage: MG PO
     Route: 048
     Dates: start: 20110531, end: 20110531

REACTIONS (2)
  - DYSPNOEA [None]
  - ANAPHYLACTIC REACTION [None]
